FAERS Safety Report 24333459 (Version 1)
Quarter: 2024Q3

REPORT INFORMATION
  Report Type: Spontaneous
  Country: US (occurrence: None)
  Receive Date: 20240917
  Receipt Date: 20240917
  Transmission Date: 20241016
  Serious: Yes (Death)
  Sender: Public
  Company Number: None

PATIENT
  Age: 5 Year
  Sex: Male

DRUGS (5)
  1. FILGRASTIM [Suspect]
     Active Substance: FILGRASTIM
     Indication: Bone marrow transplant
     Dosage: OTHER QUANTITY : 10 MCG/KG;?FREQUENCY : DAILY;?
     Route: 058
  2. DEVICE [Concomitant]
     Active Substance: DEVICE
  3. ETOPOSIDE [Concomitant]
     Active Substance: ETOPOSIDE
  4. PLATINUM [Concomitant]
     Active Substance: PLATINUM
  5. CYCLOPHOSPHAMIDE [Concomitant]
     Active Substance: CYCLOPHOSPHAMIDE

REACTIONS (4)
  - Capillary leak syndrome [None]
  - Abdominal distension [None]
  - Oedema [None]
  - Organ failure [None]

NARRATIVE: CASE EVENT DATE: 20000405
